FAERS Safety Report 4503684-2 (Version None)
Quarter: 2004Q4

REPORT INFORMATION
  Report Type: 
  Country: None (occurrence: None)
  Receive Date: 20040928
  Receipt Date: 20040609
  Transmission Date: 20050328
  Serious: No
  Sender: FDA-Public Use
  Company Number: 04P-163-0263397-00

PATIENT
  Age: 42 Year
  Sex: Female
  Weight: 81.6475 kg

DRUGS (6)
  1. HUMIRA [Suspect]
     Indication: RHEUMATOID ARTHRITIS
     Dosage: 40 MG, 1 IN 2 WK, SUBCUTANEOUS
     Route: 058
     Dates: start: 20040401
  2. VERAPAMIL [Concomitant]
  3. PANTOPRAZOLE [Concomitant]
  4. METHOTREXATE [Concomitant]
  5. MELOXICAM [Concomitant]
  6. PREDNISONE [Concomitant]

REACTIONS (2)
  - INJECTION SITE REACTION [None]
  - INJECTION SITE STINGING [None]
